FAERS Safety Report 7581636-6 (Version None)
Quarter: 2011Q2

REPORT INFORMATION
  Report Type: 
  Country: None (occurrence: None)
  Receive Date: 20110629
  Receipt Date: 20110620
  Transmission Date: 20111010
  Serious: Yes (Other)
  Sender: FDA-Public Use
  Company Number: US-US-EMD SERONO, INC.-7063094

PATIENT
  Sex: Female
  Weight: 118 kg

DRUGS (6)
  1. WELLBUTRIN [Concomitant]
  2. REBIF [Suspect]
     Indication: MULTIPLE SCLEROSIS
     Dates: start: 20110304
  3. ZANAFLEX [Concomitant]
  4. LEXAPRO [Concomitant]
  5. TRAMADOL HCL [Concomitant]
  6. BACLOFEN [Concomitant]

REACTIONS (1)
  - SYNCOPE [None]
